FAERS Safety Report 5061461-0 (Version None)
Quarter: 2006Q3

REPORT INFORMATION
  Report Type: 
  Country: None (occurrence: None)
  Receive Date: 20060719
  Receipt Date: 20060719
  Transmission Date: 20061208
  Serious: Yes (Hospitalization)
  Sender: FDA-Public Use
  Company Number: None

PATIENT
  Age: 88 Year
  Sex: Male
  Weight: 89.8122 kg

DRUGS (18)
  1. ATENOLOL [Suspect]
     Indication: ATRIAL FIBRILLATION
     Dosage: 25 MG DAILY
     Dates: start: 20031201, end: 20060615
  2. ATENOLOL [Suspect]
     Indication: CORONARY ARTERY DISEASE
     Dosage: 25 MG DAILY
     Dates: start: 20031201, end: 20060615
  3. ATENOLOL [Suspect]
     Indication: HYPERTENSION
     Dosage: 25 MG DAILY
     Dates: start: 20031201, end: 20060615
  4. TERAZOSIN HCL [Concomitant]
  5. SIMVASTATIN [Concomitant]
  6. RANITIDINE [Concomitant]
  7. POTASSIUM CHLORIDE [Concomitant]
  8. OMEPRAZOLE [Concomitant]
  9. NIFEDIPINE [Concomitant]
  10. ISOSORBIDE DINITRATE [Concomitant]
  11. CLOTRIMAZOLE [Concomitant]
  12. CARBAMAZEPINE [Concomitant]
  13. BACITRACIN [Concomitant]
  14. ATENOLOL [Concomitant]
  15. AMITRIPTYLINE HCL [Concomitant]
  16. ALLOPURINOL [Concomitant]
  17. FINASTERIDE [Concomitant]
  18. ASPIRIN [Concomitant]

REACTIONS (2)
  - BRADYCARDIA [None]
  - LOSS OF CONSCIOUSNESS [None]
